FAERS Safety Report 8722251 (Version 2)
Quarter: 2012Q4

REPORT INFORMATION
  Report Type: 
  Country: US (occurrence: US)
  Receive Date: 20120814
  Receipt Date: 20120907
  Transmission Date: 20130627
  Serious: Yes (Other)
  Sender: FDA-Public Use
  Company Number: US-JNJFOC-20120802842

PATIENT
  Sex: Male

DRUGS (4)
  1. STELARA [Suspect]
     Indication: PSORIASIS
     Route: 058
     Dates: start: 20091201
  2. FLUTICASONE [Concomitant]
     Indication: PSORIASIS
     Dosage: used for years
     Route: 061
  3. DOVONEX [Concomitant]
     Indication: PSORIASIS
     Dosage: used for years
     Route: 061
  4. TACLONEX [Concomitant]
     Indication: PSORIASIS
     Dosage: used for years
     Route: 061

REACTIONS (1)
  - Cutaneous lupus erythematosus [Recovering/Resolving]
